FAERS Safety Report 14088885 (Version 1)
Quarter: 2017Q4

REPORT INFORMATION
  Report Type: Spontaneous
  Country: RO (occurrence: RO)
  Receive Date: 20171014
  Receipt Date: 20171014
  Transmission Date: 20180321
  Serious: Yes (Hospitalization, Other)
  Sender: FDA-Public Use
  Company Number: RO-VISTAPHARM, INC.-VER201710-000840

PATIENT
  Age: 36 Year
  Sex: Male

DRUGS (2)
  1. METHADONE [Suspect]
     Active Substance: METHADONE HYDROCHLORIDE
     Route: 042
  2. METHADONE [Suspect]
     Active Substance: METHADONE HYDROCHLORIDE
     Indication: PRODUCT SUBSTITUTION

REACTIONS (6)
  - Mental status changes [Unknown]
  - Tachycardia [Unknown]
  - Oedema [Unknown]
  - Deafness [Recovered/Resolved]
  - Swelling [Unknown]
  - Overdose [Unknown]
